FAERS Safety Report 6486829-7 (Version None)
Quarter: 2009Q4

REPORT INFORMATION
  Report Type: 
  Country: None (occurrence: None)
  Receive Date: 20091210
  Receipt Date: 20091207
  Transmission Date: 20100525
  Serious: Yes (Death, Hospitalization, Other)
  Sender: FDA-Public Use
  Company Number: PHHY2009FR53929

PATIENT
  Age: 54 Year
  Sex: Male

DRUGS (3)
  1. NEORAL [Suspect]
     Indication: LIVER TRANSPLANT
     Dosage: UNK
     Dates: start: 20090428
  2. PROGRAF [Suspect]
     Indication: LIVER TRANSPLANT
     Dosage: UNK
     Dates: start: 20090301
  3. CELLCEPT [Suspect]
     Indication: LIVER TRANSPLANT
     Dosage: UNK
     Dates: start: 20090301

REACTIONS (8)
  - BILE DUCT NECROSIS [None]
  - ENCEPHALITIS [None]
  - LUNG INFECTION PSEUDOMONAL [None]
  - NEUROLOGICAL SYMPTOM [None]
  - PNEUMOCYSTIS JIROVECI PNEUMONIA [None]
  - PSEUDOMONAS INFECTION [None]
  - SEPTIC SHOCK [None]
  - URINARY TRACT INFECTION ENTEROCOCCAL [None]
